FAERS Safety Report 11254204 (Version 1)
Quarter: 2015Q3

REPORT INFORMATION
  Report Type: Spontaneous
  Country: DE (occurrence: DE)
  Receive Date: 20150709
  Receipt Date: 20150709
  Transmission Date: 20151125
  Serious: Yes (Hospitalization)
  Sender: FDA-Public Use
  Company Number: GXKR2015DE003263

PATIENT
  Sex: Female
  Weight: 168 kg

DRUGS (5)
  1. BELOC-ZOC FORTE [Concomitant]
     Indication: MIGRAINE
     Dosage: 95 MG, PRN
     Route: 048
  2. DOXYCYCLIN - 1 A PHARMA [Suspect]
     Active Substance: DOXYCYCLINE
     Indication: BORRELIA INFECTION
     Dosage: 50 MG, ONCE/SINGLE
     Route: 048
     Dates: start: 20150614, end: 20150614
  3. VIRZIN [Concomitant]
     Indication: PRODUCT USED FOR UNKNOWN INDICATION
     Dosage: 800 MG, BID
     Route: 048
  4. MAXALT LINGUA [Concomitant]
     Indication: PRODUCT USED FOR UNKNOWN INDICATION
     Dosage: 10 MG, PRN
     Route: 048
  5. SUMATRIPTAN. [Concomitant]
     Active Substance: SUMATRIPTAN
     Indication: PRODUCT USED FOR UNKNOWN INDICATION
     Dosage: 100 MG, PRN
     Route: 048

REACTIONS (7)
  - Chills [Unknown]
  - Diarrhoea [Unknown]
  - Vomiting [Unknown]
  - Ear pain [Unknown]
  - Headache [Recovering/Resolving]
  - Malaise [Unknown]
  - Nausea [Unknown]

NARRATIVE: CASE EVENT DATE: 20150614
